FAERS Safety Report 8607420-X (Version None)
Quarter: 2012Q3

REPORT INFORMATION
  Report Type: 
  Country: None (occurrence: None)
  Receive Date: 20120727
  Receipt Date: 20120712
  Transmission Date: 20120928
  Serious: Yes (Hospitalization)
  Sender: FDA-Public Use
  Company Number: AEESP201200359

PATIENT
  Age: 74 Year
  Sex: Female

DRUGS (25)
  1. FUROSEMIDE [Concomitant]
  2. LYRICA [Concomitant]
  3. SODIUM CHLORIDE [Concomitant]
  4. AMOXICILLIN [Concomitant]
  5. CEFUROXIME [Concomitant]
  6. ACETAMINOPHEN [Concomitant]
  7. ACTONEL [Concomitant]
  8. CYCLOPHOSPHAMIDE [Suspect]
     Indication: NON-HODGKIN'S LYMPHOMA
     Dates: start: 20120614, end: 20120614
  9. HYDROCORTONE [Concomitant]
  10. PREDNISONE TAB [Suspect]
     Indication: NON-HODGKIN'S LYMPHOMA
  11. METAMIZOLE (METAMIZOLE) [Concomitant]
  12. TRIMETHOPRIM + SULFAMETHOXAZOLE [Concomitant]
  13. OMEPRAZOLE [Concomitant]
  14. HIDROFEROL (CALCIFEDEIOL) [Concomitant]
  15. CLARITHROMYCIN [Concomitant]
  16. RITUXIMAB (RITUXIMAB) [Concomitant]
  17. DEXTROSE 5% [Concomitant]
  18. MASTICAL (CALCIUM CARBONATE) [Concomitant]
  19. ERYTHROPOIETIN (ERYTHROPOIETIN) [Concomitant]
  20. PANTOPRAZOL (PANTOPRAZOLE SODIUM SESQUIHYDRATE) [Concomitant]
  21. FLEBOGAMMA [Suspect]
     Indication: HYPOGAMMAGLOBULINAEMIA
     Dosage: 20 GM
     Route: 042
     Dates: start: 20120614, end: 20120614
  22. CARVEDILOL [Concomitant]
  23. DEXCHLORPHENIRAMINE (DEXCHLORPHENIRAMINE) [Concomitant]
  24. METOCLOPRAMIDE [Concomitant]
  25. VINCRISTINE [Concomitant]

REACTIONS (5)
  - DYSPNOEA [None]
  - THROMBOTIC THROMBOCYTOPENIC PURPURA [None]
  - PLASMAPHERESIS [None]
  - HAEMOLYTIC URAEMIC SYNDROME [None]
  - BACK PAIN [None]
